FAERS Safety Report 24267441 (Version 1)
Quarter: 2024Q3

REPORT INFORMATION
  Report Type: Spontaneous
  Country: US (occurrence: US)
  Receive Date: 20240830
  Receipt Date: 20240830
  Transmission Date: 20241016
  Serious: No
  Sender: ABBVIE
  Company Number: US-ABBVIE-5887802

PATIENT
  Age: 41 Year
  Sex: Female
  Weight: 72.121 kg

DRUGS (1)
  1. HUMIRA [Suspect]
     Active Substance: ADALIMUMAB
     Indication: Crohn^s disease
     Dosage: FORM STRENGTH: 40 MILLIGRAM
     Route: 058
     Dates: end: 202403

REACTIONS (4)
  - Staphylococcal infection [Recovered/Resolved]
  - Staphylococcal infection [Recovering/Resolving]
  - Immunodeficiency [Not Recovered/Not Resolved]
  - Pruritus [Recovering/Resolving]

NARRATIVE: CASE EVENT DATE: 20231001
